FAERS Safety Report 23607031 (Version 2)
Quarter: 2024Q2

REPORT INFORMATION
  Report Type: Report from Study
  Country: US (occurrence: US)
  Receive Date: 20240307
  Receipt Date: 20240604
  Transmission Date: 20240715
  Serious: Yes (Other)
  Sender: FDA-Public Use
  Company Number: US-ABBVIE-4718651

PATIENT
  Age: 63 Year
  Sex: Female

DRUGS (1)
  1. HUMIRA [Suspect]
     Active Substance: ADALIMUMAB
     Indication: Crohn^s disease
     Dosage: FORM STRENGTH 40 MILLIGRAM?CITRATE FREE
     Route: 058
     Dates: start: 20190628

REACTIONS (4)
  - Corneal graft rejection [Unknown]
  - Corneal transplant [Recovering/Resolving]
  - Corneal transplant [Recovering/Resolving]
  - Ankle operation [Recovering/Resolving]

NARRATIVE: CASE EVENT DATE: 20220404
